FAERS Safety Report 7920177-0 (Version None)
Quarter: 2011Q4

REPORT INFORMATION
  Report Type: 
  Country: None (occurrence: None)
  Receive Date: 20111117
  Receipt Date: 20111110
  Transmission Date: 20120403
  Serious: Yes (Hospitalization)
  Sender: FDA-Public Use
  Company Number: JP-JNJFOC-20111105204

PATIENT
  Age: 41 Year
  Sex: Female

DRUGS (6)
  1. RISPERDAL [Suspect]
     Route: 048
     Dates: start: 20110118, end: 20110118
  2. RISPERDAL [Suspect]
     Indication: SCHIZOPHRENIFORM DISORDER
     Route: 048
     Dates: start: 20110119, end: 20110304
  3. RISPERDAL [Suspect]
     Route: 048
     Dates: start: 20110304
  4. DEPAKENE [Concomitant]
     Route: 048
     Dates: start: 20110120
  5. PHENYTOIN [Suspect]
     Indication: PRODUCT USED FOR UNKNOWN INDICATION
     Route: 065
  6. VALPROATE SODIUM [Concomitant]
     Route: 048
     Dates: start: 20110118, end: 20110119

REACTIONS (5)
  - TOXICITY TO VARIOUS AGENTS [None]
  - SEDATION [None]
  - INTENTION TREMOR [None]
  - GINGIVAL HYPERPLASIA [None]
  - EXTRAPYRAMIDAL DISORDER [None]
